FAERS Safety Report 9854523 (Version 1)
Quarter: 2014Q1

REPORT INFORMATION
  Report Type: Spontaneous
  Country: US (occurrence: US)
  Receive Date: 20140130
  Receipt Date: 20140130
  Transmission Date: 20141002
  Serious: Yes (Death)
  Sender: FDA-Public Use
  Company Number: US-PAR PHARMACEUTICAL, INC-2014SCPR008643

PATIENT
  Age: 26 Year
  Sex: Female

DRUGS (2)
  1. ALPRAZOLAM [Suspect]
     Indication: PRODUCT USED FOR UNKNOWN INDICATION
     Dosage: UNK, UNKNOWN
     Route: 048
  2. SALICYLATES NOS [Suspect]
     Indication: PRODUCT USED FOR UNKNOWN INDICATION
     Dosage: UNK, UNKNOWN
     Route: 048

REACTIONS (9)
  - Death [Fatal]
  - Completed suicide [Fatal]
  - Toxicity to various agents [Fatal]
  - Exposure during pregnancy [Fatal]
  - Cardiac arrest [Fatal]
  - Mental status changes [Fatal]
  - Pulmonary congestion [Fatal]
  - Hypotension [Fatal]
  - Agitation [Fatal]
